FAERS Safety Report 25232165 (Version 1)
Quarter: 2025Q2

REPORT INFORMATION
  Report Type: Spontaneous
  Country: CA (occurrence: CA)
  Receive Date: 20250423
  Receipt Date: 20250423
  Transmission Date: 20250717
  Serious: Yes (Hospitalization, Other)
  Sender: JOHNSON AND JOHNSON
  Company Number: CA-JNJFOC-20250420819

PATIENT
  Age: 61 Year
  Sex: Female

DRUGS (2)
  1. SIMPONI [Suspect]
     Active Substance: GOLIMUMAB
     Indication: Rheumatoid arthritis
     Dosage: STRENGTH: 50 MG/0.5 ML
     Route: 058
  2. SIMPONI [Suspect]
     Active Substance: GOLIMUMAB

REACTIONS (6)
  - Post procedural infection [Recovered/Resolved]
  - Pseudomonas infection [Recovered/Resolved]
  - Knee arthroplasty [Unknown]
  - Joint dislocation [Unknown]
  - Rheumatoid arthritis [Unknown]
  - Infection [Unknown]

NARRATIVE: CASE EVENT DATE: 20230901
